FAERS Safety Report 16530485 (Version 2)
Quarter: 2019Q3

REPORT INFORMATION
  Report Type: Spontaneous
  Country: CO (occurrence: CO)
  Receive Date: 20190704
  Receipt Date: 20190930
  Transmission Date: 20191004
  Serious: Yes (Death, Hospitalization)
  Sender: FDA-Public Use
  Company Number: CO-ROCHE-2349110

PATIENT
  Age: 72 Year
  Sex: Male

DRUGS (1)
  1. GAZYVA [Suspect]
     Active Substance: OBINUTUZUMAB
     Indication: B-CELL LYMPHOMA
     Dosage: UNKNOWN DOSE
     Route: 042
     Dates: start: 20190601, end: 20190608

REACTIONS (9)
  - Tumour lysis syndrome [Fatal]
  - Thrombocytopenia [Fatal]
  - Neutropenia [Fatal]
  - Paralysis [Fatal]
  - Cerebral ischaemia [Fatal]
  - Intestinal obstruction [Fatal]
  - Ejection fraction [Fatal]
  - Pneumonia [Fatal]
  - Arrhythmia [Fatal]

NARRATIVE: CASE EVENT DATE: 201906
